FAERS Safety Report 15287809 (Version 2)
Quarter: 2025Q4

REPORT INFORMATION
  Report Type: Spontaneous
  Country: EU (occurrence: EU)
  Receive Date: 20180817
  Receipt Date: 20251210
  Transmission Date: 20260118
  Serious: Yes (Death, Other)
  Sender: AUROBINDO
  Company Number: EU-AUROBINDO-AUR-APL-2018-041552

PATIENT
  Age: 22 Year
  Sex: Female

DRUGS (1)
  1. ACETAMINOPHEN [Suspect]
     Active Substance: ACETAMINOPHEN
     Indication: Product used for unknown indication
     Dosage: 8 GRAM (FULL BOX WITH 1G OF PARACETAMOL PER TABLET, TAKEN AT ONCE OR 6 G PER DAY FOR TWO OR THREE DAYS)
     Route: 065

REACTIONS (3)
  - Multiple organ dysfunction syndrome [Fatal]
  - Drug-induced liver injury [Fatal]
  - Pain in extremity [Fatal]

NARRATIVE: CASE EVENT DATE: 20171201
